FAERS Safety Report 23285676 (Version 1)
Quarter: 2023Q4

REPORT INFORMATION
  Report Type: Report from Study
  Country: US (occurrence: US)
  Receive Date: 20231212
  Receipt Date: 20231212
  Transmission Date: 20240109
  Serious: No
  Sender: FDA-Public Use
  Company Number: US-ALXN-A202301727

PATIENT
  Sex: Female

DRUGS (1)
  1. ULTOMIRIS [Suspect]
     Active Substance: RAVULIZUMAB-CWVZ
     Indication: Myasthenia gravis
     Dosage: UNK
     Route: 065

REACTIONS (6)
  - Abdominal discomfort [Unknown]
  - Feeling abnormal [Unknown]
  - Illness [Unknown]
  - Irritability [Unknown]
  - Weight increased [Unknown]
  - Asthenia [Unknown]

NARRATIVE: CASE EVENT DATE: 20230209
